FAERS Safety Report 19642644 (Version 1)
Quarter: 2021Q3

REPORT INFORMATION
  Report Type: Spontaneous
  Country: GR (occurrence: GR)
  Receive Date: 20210730
  Receipt Date: 20210730
  Transmission Date: 20211014
  Serious: Yes (Other)
  Sender: FDA-Public Use
  Company Number: GR-ASTRAZENECA-2021A635794

PATIENT
  Age: 78 Year
  Sex: Female
  Weight: 60 kg

DRUGS (19)
  1. CONCOR [Suspect]
     Active Substance: BISOPROLOL FUMARATE
     Indication: CARDIOVASCULAR DISORDER
     Dosage: 1/2 TABLET EVERY MORNING, AND 1/2 EVERY NIGHT
     Route: 065
  2. ZODIN (OMEGA?3?ACID ETHYL ESTERS) [Suspect]
     Active Substance: OMEGA-3-ACID ETHYL ESTERS
     Indication: BLOOD TRIGLYCERIDES
     Dosage: ONE AT NOON AFTER LUNCH
     Route: 065
     Dates: start: 20210530, end: 20210613
  3. MAXUDIN [Suspect]
     Active Substance: PRAVASTATIN SODIUM
     Indication: BLOOD CHOLESTEROL INCREASED
     Dosage: 40 MG, HALF AT NIGHT
     Route: 065
     Dates: start: 20210530, end: 20210613
  4. LEPUR [Suspect]
     Active Substance: SIMVASTATIN
     Indication: BLOOD CHOLESTEROL
     Dosage: UNK
     Route: 065
  5. NEXIUM [Suspect]
     Active Substance: ESOMEPRAZOLE MAGNESIUM
     Dosage: UNK
     Route: 065
  6. COVERSYL [Suspect]
     Active Substance: PERINDOPRIL
     Indication: ARRHYTHMIA
     Dosage: UNK, DAILY IN THE MORNING (QD)
     Route: 065
  7. INEGY [Suspect]
     Active Substance: EZETIMIBE\SIMVASTATIN
     Dosage: UNK
     Route: 048
  8. INEGY [Suspect]
     Active Substance: EZETIMIBE\SIMVASTATIN
     Dosage: UNK
     Route: 048
     Dates: start: 2019, end: 20210417
  9. EVIOL [Suspect]
     Active Substance: TOCOPHEROL
     Dosage: 1 IN THE MORNING AFTER BREAKFAST
     Route: 065
     Dates: start: 20210530, end: 20210613
  10. COVERSYL [Suspect]
     Active Substance: PERINDOPRIL
     Indication: ARRHYTHMIA
     Route: 065
  11. DEPON [Suspect]
     Active Substance: ACETAMINOPHEN
     Indication: BACK PAIN
     Dosage: UNK
     Route: 065
  12. CONCOR [Suspect]
     Active Substance: BISOPROLOL FUMARATE
     Indication: ARRHYTHMIA
     Dosage: 1/2 TABLET EVERY MORNING, AND 1/2 EVERY NIGHT
     Route: 065
  13. NEURONTIN [Suspect]
     Active Substance: GABAPENTIN
     Indication: NERVOUS SYSTEM DISORDER
     Dosage: 300.0MG UNKNOWN
     Route: 065
     Dates: start: 20210530, end: 20210613
  14. BEPANTHOL (DEXPANTHENOL\HYALURONATE SODIUM) [Suspect]
     Active Substance: DEXPANTHENOL\HYALURONATE SODIUM
     Indication: PRURITUS
     Dosage: UNK
     Route: 065
  15. COSOPT [Suspect]
     Active Substance: DORZOLAMIDE HYDROCHLORIDE\TIMOLOL MALEATE
     Indication: GLAUCOMA
     Dosage: 20 MG MONODOSE EYE DROPS FOR A MONTH AT NIGHT
     Route: 065
  16. COVERSYL [Suspect]
     Active Substance: PERINDOPRIL
     Indication: CARDIOVASCULAR DISORDER
     Route: 065
  17. VITAMIN D [Suspect]
     Active Substance: VITAMIN D NOS
     Dosage: UNK
     Route: 065
  18. COVERSYL [Suspect]
     Active Substance: PERINDOPRIL
     Indication: CARDIOVASCULAR DISORDER
     Dosage: UNK, DAILY IN THE MORNING (QD)
     Route: 065
  19. LEXOTANIL [Suspect]
     Active Substance: BROMAZEPAM
     Dosage: UNK
     Route: 065

REACTIONS (35)
  - Kyphosis [Unknown]
  - Haematoma [Unknown]
  - Blood cholesterol increased [Unknown]
  - Accident [Unknown]
  - Alopecia [Unknown]
  - Arthralgia [Recovering/Resolving]
  - Pruritus [Recovering/Resolving]
  - Vomiting [Unknown]
  - Gastrointestinal disorder [Unknown]
  - Spinal column injury [Unknown]
  - Amnesia [Recovered/Resolved]
  - Abnormal dreams [Recovered/Resolved]
  - Nausea [Unknown]
  - Myalgia [Recovering/Resolving]
  - Osteopenia [Unknown]
  - Product dose omission issue [Unknown]
  - Coccydynia [Unknown]
  - Dizziness [Unknown]
  - Confusional state [Recovered/Resolved]
  - Syncope [Unknown]
  - Wrist fracture [Unknown]
  - Arrhythmia [Unknown]
  - Muscle swelling [Unknown]
  - Musculoskeletal discomfort [Unknown]
  - Contusion [Unknown]
  - Loss of consciousness [Unknown]
  - Fall [Unknown]
  - Anxiety [Recovered/Resolved]
  - Psoriasis [Unknown]
  - Muscular weakness [Unknown]
  - Adverse event [Unknown]
  - Blood triglycerides increased [Unknown]
  - Tooth fracture [Unknown]
  - Blood glucose abnormal [Unknown]
  - Swelling face [Unknown]

NARRATIVE: CASE EVENT DATE: 20191227
